FAERS Safety Report 21306861 (Version 1)
Quarter: 2022Q3

REPORT INFORMATION
  Report Type: Spontaneous
  Country: US (occurrence: None)
  Receive Date: 20220907
  Receipt Date: 20220907
  Transmission Date: 20221026
  Serious: No
  Sender: FDA-Public Use
  Company Number: None

PATIENT
  Age: 61 Year
  Sex: Female

DRUGS (1)
  1. TALTZ [Suspect]
     Active Substance: IXEKIZUMAB
     Indication: Myocarditis infectious
     Dosage: FREQUENCY : MONTHLY;?
     Route: 058
     Dates: start: 202107

REACTIONS (2)
  - Nasopharyngitis [None]
  - Ear infection [None]
